FAERS Safety Report 4800089-1 (Version None)
Quarter: 2005Q4

REPORT INFORMATION
  Report Type: 
  Country: None (occurrence: None)
  Receive Date: 20051012
  Receipt Date: 20051012
  Transmission Date: 20060501
  Serious: Yes (Hospitalization)
  Sender: FDA-Public Use
  Company Number: None

PATIENT
  Sex: Female
  Weight: 83.9154 kg

DRUGS (7)
  1. ALEVE [Suspect]
     Indication: PAIN
     Dosage: PO [PRIOR TO ADMISSION]
     Route: 048
  2. NEURONTIN [Concomitant]
  3. LIPITOR [Concomitant]
  4. TOPROL-XL [Concomitant]
  5. SYNTHROID [Concomitant]
  6. PROTONIX [Concomitant]
  7. VICODIN [Concomitant]

REACTIONS (3)
  - DUODENAL ULCER [None]
  - INSOMNIA [None]
  - LETHARGY [None]
